FAERS Safety Report 11195573 (Version 1)
Quarter: 2015Q2

REPORT INFORMATION
  Report Type: Spontaneous
  Country: IE (occurrence: IE)
  Receive Date: 20150617
  Receipt Date: 20150617
  Transmission Date: 20150821
  Serious: Yes (Other)
  Sender: FDA-Public Use
  Company Number: IE-JNJFOC-20150607723

PATIENT

DRUGS (10)
  1. PARACETAMOL [Suspect]
     Active Substance: ACETAMINOPHEN
     Route: 065
  2. OPIATES [Suspect]
     Active Substance: UNSPECIFIED INGREDIENT
     Indication: PRODUCT USED FOR UNKNOWN INDICATION
     Route: 065
  3. ANTIRETROVIRALS [Suspect]
     Active Substance: UNSPECIFIED INGREDIENT
     Indication: PRODUCT USED FOR UNKNOWN INDICATION
     Route: 065
  4. STATINS [Suspect]
     Active Substance: UNSPECIFIED INGREDIENT
     Indication: PRODUCT USED FOR UNKNOWN INDICATION
     Route: 065
  5. TUBERCULOSIS MEDICATIONS [Suspect]
     Active Substance: UNSPECIFIED INGREDIENT
     Indication: PRODUCT USED FOR UNKNOWN INDICATION
     Route: 065
  6. COCAINE [Suspect]
     Active Substance: COCAINE
     Indication: PRODUCT USED FOR UNKNOWN INDICATION
     Route: 065
  7. CHINESE HERBS [Suspect]
     Active Substance: HERBALS
     Indication: PRODUCT USED FOR UNKNOWN INDICATION
     Route: 065
  8. PARACETAMOL [Suspect]
     Active Substance: ACETAMINOPHEN
     Indication: PRODUCT USED FOR UNKNOWN INDICATION
     Route: 065
  9. ANTIBIOTICS [Suspect]
     Active Substance: UNSPECIFIED INGREDIENT
     Indication: PRODUCT USED FOR UNKNOWN INDICATION
     Route: 065
  10. BOSENTAN [Suspect]
     Active Substance: BOSENTAN\BOSENTAN MONOHYDRATE
     Indication: PRODUCT USED FOR UNKNOWN INDICATION
     Route: 065

REACTIONS (8)
  - Hepatitis viral [None]
  - Hepatic ischaemia [None]
  - Autoimmune hepatitis [None]
  - Alanine aminotransferase increased [None]
  - Hepatitis acute [None]
  - Drug-induced liver injury [Unknown]
  - Bile duct stone [None]
  - Toxicity to various agents [Unknown]
